FAERS Safety Report 5288181-1 (Version None)
Quarter: 2007Q1

REPORT INFORMATION
  Report Type: 
  Country: None (occurrence: None)
  Receive Date: 20070116
  Receipt Date: 20060714
  Transmission Date: 20070707
  Serious: No
  Sender: FDA-Public Use
  Company Number: FEI2006-1012

PATIENT
  Sex: Female

DRUGS (1)
  1. INTRAUTERINE COPPER CONTRACEPTIVE [Suspect]
     Indication: CONTRACEPTION
     Dosage: INTRA-UTERINE
     Route: 015

REACTIONS (1)
  - IUD MIGRATION [None]
